FAERS Safety Report 15335639 (Version 1)
Quarter: 2018Q3

REPORT INFORMATION
  Report Type: Spontaneous
  Country: DE (occurrence: DE)
  Receive Date: 20180830
  Receipt Date: 20180830
  Transmission Date: 20181010
  Serious: Yes (Hospitalization, Other)
  Sender: FDA-Public Use
  Company Number: PHHY2015DE178158

PATIENT
  Age: 65 Year
  Sex: Female
  Weight: 80 kg

DRUGS (42)
  1. PACLITAXEL. [Suspect]
     Active Substance: PACLITAXEL
     Dosage: 152 MG, UNK
     Route: 042
     Dates: start: 20141013
  2. PACLITAXEL. [Suspect]
     Active Substance: PACLITAXEL
     Dosage: 152 MG, UNK
     Route: 042
     Dates: start: 20150209
  3. PACLITAXEL. [Suspect]
     Active Substance: PACLITAXEL
     Dosage: 152 MG, UNK
     Route: 042
     Dates: start: 20150427
  4. PACLITAXEL. [Suspect]
     Active Substance: PACLITAXEL
     Dosage: 152 MG, UNK
     Route: 042
     Dates: start: 20150112
  5. PACLITAXEL. [Suspect]
     Active Substance: PACLITAXEL
     Dosage: 152 MG, UNK
     Route: 042
     Dates: start: 20150223
  6. PACLITAXEL. [Suspect]
     Active Substance: PACLITAXEL
     Dosage: 152 MG, UNK
     Route: 042
     Dates: start: 20150413
  7. PROMETHAZINE [Concomitant]
     Active Substance: PROMETHAZINE\PROMETHAZINE HYDROCHLORIDE
     Indication: ANXIETY
     Dosage: 15 GTT, UNK
     Route: 048
     Dates: start: 20140930
  8. PACLITAXEL. [Suspect]
     Active Substance: PACLITAXEL
     Dosage: 152 MG, UNK
     Route: 042
     Dates: start: 20141020
  9. PACLITAXEL. [Suspect]
     Active Substance: PACLITAXEL
     Dosage: 152 MG, UNK
     Route: 042
     Dates: start: 20141208
  10. PACLITAXEL. [Suspect]
     Active Substance: PACLITAXEL
     Dosage: 152 MG, UNK
     Route: 042
     Dates: start: 20150126
  11. BEVACIZUMAB. [Suspect]
     Active Substance: BEVACIZUMAB
     Dosage: 1200 MG, UNK
     Route: 042
     Dates: start: 20150617
  12. RANITIDIN [Concomitant]
     Active Substance: RANITIDINE HYDROCHLORIDE
     Indication: NAUSEA
     Route: 042
     Dates: start: 20140929
  13. CODEINE PHOSPHATE [Concomitant]
     Active Substance: CODEINE PHOSPHATE
     Indication: COUGH
     Dosage: 40 GTT, UNK
     Route: 048
     Dates: start: 20141020, end: 20150617
  14. METOPROLOL. [Concomitant]
     Active Substance: METOPROLOL
     Indication: HYPERTENSION
     Dosage: 100 MG, UNK
     Route: 048
     Dates: start: 2004
  15. PACLITAXEL. [Suspect]
     Active Substance: PACLITAXEL
     Indication: PRODUCT USED FOR UNKNOWN INDICATION
     Dosage: 152 MG, UNK
     Route: 042
     Dates: start: 20140929
  16. PACLITAXEL. [Suspect]
     Active Substance: PACLITAXEL
     Dosage: 152 MG, UNK
     Route: 042
     Dates: start: 20141006
  17. PACLITAXEL. [Suspect]
     Active Substance: PACLITAXEL
     Dosage: 152 MG, UNK
     Route: 042
     Dates: start: 20141215
  18. PACLITAXEL. [Suspect]
     Active Substance: PACLITAXEL
     Dosage: 152 MG, UNK
     Route: 042
     Dates: start: 20150302
  19. PACLITAXEL. [Suspect]
     Active Substance: PACLITAXEL
     Dosage: 152 MG, UNK
     Route: 042
     Dates: start: 20150330
  20. BEVACIZUMAB. [Suspect]
     Active Substance: BEVACIZUMAB
     Indication: BREAST CANCER
     Dosage: 1200 MG, UNK
     Route: 042
     Dates: start: 20140929, end: 20150112
  21. BEVACIZUMAB. [Suspect]
     Active Substance: BEVACIZUMAB
     Dosage: 1290 MG, UNK
     Route: 042
     Dates: start: 20160114, end: 20160114
  22. METOCLOPRAMID [Concomitant]
     Active Substance: METOCLOPRAMIDE
     Indication: VOMITING
     Dosage: 90 GTT, UNK
     Route: 048
     Dates: start: 20141105, end: 20141124
  23. ASPIRIN. [Concomitant]
     Active Substance: ASPIRIN
     Indication: THROMBOSIS
     Dosage: 100 MG, UNK
     Route: 048
     Dates: start: 2008
  24. FUROSEMID [Concomitant]
     Active Substance: FUROSEMIDE
     Indication: HYPERTENSION
     Dosage: 40 MG, UNK
     Route: 048
     Dates: start: 2004
  25. PACLITAXEL. [Suspect]
     Active Substance: PACLITAXEL
     Dosage: 152 MG, UNK
     Route: 042
     Dates: start: 20150407
  26. DEXAMETHASONE. [Concomitant]
     Active Substance: DEXAMETHASONE
     Indication: HYPERSENSITIVITY
     Route: 042
     Dates: start: 20140929
  27. NOVALGIN (METAMIZOLE SODIUM) [Concomitant]
     Active Substance: METAMIZOLE SODIUM
     Indication: PAIN IN EXTREMITY
     Route: 048
     Dates: start: 20140929
  28. RAMIPRIL. [Concomitant]
     Active Substance: RAMIPRIL
     Indication: HYPERTENSION
     Dosage: 2.5 MG, UNK
     Route: 048
     Dates: start: 2004
  29. LYRICA [Concomitant]
     Active Substance: PREGABALIN
     Indication: POLYNEUROPATHY
     Dosage: 150 MG, UNK
     Route: 048
     Dates: start: 20150413, end: 20150728
  30. PACLITAXEL. [Suspect]
     Active Substance: PACLITAXEL
     Dosage: 152 MG, UNK
     Route: 042
     Dates: start: 20141201
  31. PACLITAXEL. [Suspect]
     Active Substance: PACLITAXEL
     Dosage: 152 MG, UNK
     Route: 042
     Dates: start: 20150420
  32. PACLITAXEL. [Suspect]
     Active Substance: PACLITAXEL
     Dosage: 152 MG, UNK
     Route: 042
     Dates: start: 20150504
  33. ANASTROZOLE. [Concomitant]
     Active Substance: ANASTROZOLE
     Indication: BREAST CANCER
     Dosage: 1 G, UNK
     Route: 048
     Dates: start: 20150514, end: 20161116
  34. LORAZEPAM. [Concomitant]
     Active Substance: LORAZEPAM
     Indication: ANXIETY
     Dosage: 0.5 MG, UNK
     Route: 048
     Dates: start: 20140929, end: 20140930
  35. PACLITAXEL. [Suspect]
     Active Substance: PACLITAXEL
     Dosage: 152 MG, UNK
     Route: 042
     Dates: start: 20141027
  36. PACLITAXEL. [Suspect]
     Active Substance: PACLITAXEL
     Dosage: 152 MG, UNK
     Route: 042
     Dates: start: 20141103
  37. PACLITAXEL. [Suspect]
     Active Substance: PACLITAXEL
     Dosage: 152 MG, UNK
     Route: 042
     Dates: start: 20141117
  38. PACLITAXEL. [Suspect]
     Active Substance: PACLITAXEL
     Dosage: 152 MG, UNK
     Route: 042
     Dates: start: 20141124
  39. PACLITAXEL. [Suspect]
     Active Substance: PACLITAXEL
     Dosage: 152 MG, UNK
     Route: 042
     Dates: start: 20141222
  40. PACLITAXEL. [Suspect]
     Active Substance: PACLITAXEL
     Dosage: 152 MG, UNK
     Route: 042
     Dates: start: 20150119
  41. PACLITAXEL. [Suspect]
     Active Substance: PACLITAXEL
     Dosage: 152 MG, UNK
     Route: 042
     Dates: start: 20150216
  42. DIMETINDENE MALEATE [Concomitant]
     Active Substance: DIMETHINDENE MALEATE
     Indication: HYPERSENSITIVITY
     Dosage: 4 MG, UNK
     Route: 042
     Dates: start: 20140929

REACTIONS (3)
  - Diarrhoea [Recovered/Resolved]
  - Hypertension [Recovered/Resolved]
  - Pyrexia [Recovered/Resolved]

NARRATIVE: CASE EVENT DATE: 20140930
